FAERS Safety Report 4330394-7 (Version None)
Quarter: 2004Q2

REPORT INFORMATION
  Report Type: 
  Country: None (occurrence: None)
  Receive Date: 20040402
  Receipt Date: 20040326
  Transmission Date: 20050107
  Serious: Yes (Hospitalization)
  Sender: FDA-Public Use
  Company Number: 200413648GDDC

PATIENT
  Age: 81 Year
  Sex: Female

DRUGS (1)
  1. MINIRIN [Suspect]
     Indication: NOCTURIA
     Route: 048
     Dates: start: 20030822, end: 20030826

REACTIONS (2)
  - DIZZINESS [None]
  - HYPONATRAEMIA [None]
